FAERS Safety Report 24865435 (Version 1)
Quarter: 2025Q1

REPORT INFORMATION
  Report Type: Spontaneous
  Country: JP (occurrence: JP)
  Receive Date: 20250121
  Receipt Date: 20250121
  Transmission Date: 20250409
  Serious: Yes (Other)
  Sender: BRISTOL-MYERS SQUIBB COMPANY
  Company Number: JP-ONO-2025JP000744

PATIENT
  Age: 9 Decade
  Sex: Male

DRUGS (1)
  1. OPDIVO [Suspect]
     Active Substance: NIVOLUMAB
     Indication: Malignant melanoma
     Dosage: UNK, Q4W
     Route: 041

REACTIONS (2)
  - Immune-mediated enterocolitis [Recovered/Resolved]
  - Immune-mediated dermatitis [Recovering/Resolving]
